FAERS Safety Report 8192750-9 (Version None)
Quarter: 2012Q1

REPORT INFORMATION
  Report Type: 
  Country: None (occurrence: None)
  Receive Date: 20120308
  Receipt Date: 20120305
  Transmission Date: 20120608
  Serious: No
  Sender: FDA-Public Use
  Company Number: US-PFIZER INC-2012058847

PATIENT
  Sex: Female
  Weight: 56.236 kg

DRUGS (7)
  1. KLONOPIN [Concomitant]
     Dosage: 2 MG, 1X/DAY
  2. EFFEXOR XR [Suspect]
     Indication: DEPRESSION
     Dosage: 225 MG, 1X/DAY
     Route: 048
  3. TOPAMAX [Concomitant]
     Dosage: 150 MG, 1X/DAY
  4. GABAPENTIN [Concomitant]
     Dosage: 300 MG, 1X/DAY
  5. ADDERALL 5 [Concomitant]
     Dosage: UNK, 1X/DAY
  6. TRAZODONE [Concomitant]
     Dosage: 300 MG, 1X/DAY
  7. WELLBUTRIN [Concomitant]
     Dosage: 150 MG, 1X/DAY

REACTIONS (1)
  - NASOPHARYNGITIS [None]
